FAERS Safety Report 9521189 (Version 1)
Quarter: 2013Q3

REPORT INFORMATION
  Report Type: Spontaneous
  Country: US (occurrence: None)
  Receive Date: 20130911
  Receipt Date: 20130911
  Transmission Date: 20140515
  Serious: Yes (Hospitalization)
  Sender: FDA-Public Use
  Company Number: SYM-2013-10485

PATIENT
  Age: 56 Year
  Sex: Male

DRUGS (2)
  1. FLUOROURACIL (FLUOROURACIL) (SOLUTION FOR INFUSION) (FLUOROURACIL) [Suspect]
     Indication: RECTAL CANCER STAGE II
     Dosage: 225 MG/M2/24
  2. THERAPEUTIC RADIOPHARMACEUTICALS (THERAPEUTIC RADIOPHARMACEUTICALS) [Concomitant]

REACTIONS (3)
  - Cardiotoxicity [None]
  - Chest pain [None]
  - Troponin increased [None]
